FAERS Safety Report 8447169-X (Version None)
Quarter: 2012Q2

REPORT INFORMATION
  Report Type: 
  Country: None (occurrence: None)
  Receive Date: 20120619
  Receipt Date: 20120615
  Transmission Date: 20120825
  Serious: No
  Sender: FDA-Public Use
  Company Number: US-PFIZER INC-2012145070

PATIENT
  Sex: Female
  Weight: 59 kg

DRUGS (5)
  1. LYRICA [Suspect]
     Indication: HYPOAESTHESIA
     Dosage: 50 MG, 2X/DAY
     Route: 048
     Dates: start: 20120606
  2. KLONOPIN [Concomitant]
     Indication: BIPOLAR DISORDER
     Dosage: HALT TABLET OF 5MG, 3X/DAY
  3. PROZAC [Concomitant]
     Indication: BIPOLAR DISORDER
     Dosage: UNK
  4. COGENTIN [Concomitant]
     Dosage: UNK
  5. ELAVIL [Concomitant]
     Indication: BIPOLAR DISORDER
     Dosage: 10 MG, DAILY

REACTIONS (3)
  - HYPOAESTHESIA [None]
  - FEELING ABNORMAL [None]
  - DIZZINESS [None]
